FAERS Safety Report 12522863 (Version 2)
Quarter: 2016Q3

REPORT INFORMATION
  Report Type: Other
  Country: GB (occurrence: GB)
  Receive Date: 20160701
  Receipt Date: 20160729
  Transmission Date: 20161109
  Serious: Yes (Other)
  Sender: FDA-Public Use
  Company Number: GB-HQ SPECIALTY-GB-2016INT000434

PATIENT
  Age: 49 Year
  Sex: Male
  Weight: 83 kg

DRUGS (12)
  1. SULFASALAZINE. [Concomitant]
     Active Substance: SULFASALAZINE
     Indication: PRODUCT USED FOR UNKNOWN INDICATION
     Dosage: 4 DOSAGE FORM (2 DOSAGE FORM, 2 IN 1 D)
     Dates: start: 20150521
  2. MELOXICAM. [Concomitant]
     Active Substance: MELOXICAM
     Indication: PRODUCT USED FOR UNKNOWN INDICATION
     Dosage: 1 DOSAGE FORM (1 DOSAGE FORM, 1 IN 1 D)
     Dates: start: 20150521
  3. CETRABEN                           /01690401/ [Concomitant]
     Indication: PRURITUS
  4. FOLIC ACID. [Concomitant]
     Active Substance: FOLIC ACID
     Indication: PRODUCT USED FOR UNKNOWN INDICATION
     Dosage: 0.4286 DOSAGE FORM (1 DOSAGE FORM, 3 IN 1 W)
     Dates: start: 20150521
  5. CANDESARTAN [Suspect]
     Active Substance: CANDESARTAN
     Indication: PRODUCT USED FOR UNKNOWN INDICATION
     Dosage: 4 MG
     Route: 048
     Dates: start: 20160307, end: 2016
  6. ZAPAIN [Concomitant]
     Active Substance: ACETAMINOPHEN\CODEINE PHOSPHATE
     Indication: PRODUCT USED FOR UNKNOWN INDICATION
     Dosage: FOUR TO SIX HOURLY WHEN REQUIRED (2 DOSAGE FORM, AS NECESSARY)
     Dates: start: 20160428, end: 20160429
  7. METHOTREXATE SODIUM. [Suspect]
     Active Substance: METHOTREXATE SODIUM
     Indication: PRODUCT USED FOR UNKNOWN INDICATION
     Dosage: INCREASE AS DIRECTED TO SEVEN TO BE TAKEN ONCE  (17.5 MG, 1 IN 1 W)
     Dates: start: 20150521, end: 2016
  8. AMLODIPINE [Concomitant]
     Active Substance: AMLODIPINE BESYLATE
     Indication: PRODUCT USED FOR UNKNOWN INDICATION
     Dosage: 1 DOSAGE FORM (1 DOSAGE FORM, 1 IN 1 D)
     Dates: start: 20160107
  9. CETRABEN                           /01690401/ [Concomitant]
     Indication: DRY SKIN
     Dosage: AS NECESSARY
     Dates: start: 20160428, end: 20160429
  10. LANSOPRAZOLE. [Concomitant]
     Active Substance: LANSOPRAZOLE
     Indication: PRODUCT USED FOR UNKNOWN INDICATION
     Dosage: 1 DOSAGE FORM (1 DOSAGE FORM, 1 IN 1 D)
     Dates: start: 20150708
  11. MOMETASONE [Concomitant]
     Active Substance: MOMETASONE
     Indication: PRODUCT USED FOR UNKNOWN INDICATION
     Dosage: 1 DOSAGE FORM (1 DOSAGE FORM, 1 IN 1 D)
     Dates: start: 20160517
  12. PREDNISOLONE. [Concomitant]
     Active Substance: PREDNISOLONE
     Indication: PRODUCT USED FOR UNKNOWN INDICATION
     Dosage: THREE TIMES DAILY FOR TWO WEEKS THEN REDUCED BY 2.5 MG PER FORTH NIGHT
     Dates: start: 20160608, end: 20160609

REACTIONS (3)
  - Hepatotoxicity [Recovered/Resolved]
  - Drug interaction [Unknown]
  - Alanine aminotransferase increased [Unknown]

NARRATIVE: CASE EVENT DATE: 20160331
